FAERS Safety Report 11713422 (Version 2)
Quarter: 2017Q2

REPORT INFORMATION
  Report Type: Spontaneous
  Country: US (occurrence: US)
  Receive Date: 20151109
  Receipt Date: 20170623
  Transmission Date: 20170829
  Serious: No
  Sender: FDA-Public Use
  Company Number: US-APOTEX-2015AP010679

PATIENT
  Sex: Male

DRUGS (3)
  1. MIRABEGRON [Suspect]
     Active Substance: MIRABEGRON
     Indication: POLLAKIURIA
     Dosage: 25 MG, Q.H.S.
     Route: 048
     Dates: start: 20141027
  2. TROSPIUM CHLORIDE. [Suspect]
     Active Substance: TROSPIUM CHLORIDE
     Indication: PRODUCT USED FOR UNKNOWN INDICATION
     Dosage: 20 MG, QD
     Route: 065
  3. MIRABEGRON [Suspect]
     Active Substance: MIRABEGRON
     Dosage: 50 MG, Q.H.S.
     Route: 048
     Dates: start: 201412

REACTIONS (2)
  - Pollakiuria [Recovered/Resolved]
  - Drug ineffective [Not Recovered/Not Resolved]
